FAERS Safety Report 8968403 (Version 1)
Quarter: 2012Q4

REPORT INFORMATION
  Report Type: 
  Country: US (occurrence: US)
  Receive Date: 20121217
  Receipt Date: 20121217
  Transmission Date: 20130627
  Serious: Yes (Other)
  Sender: FDA-Public Use
  Company Number: US-PFIZER INC-2012318488

PATIENT
  Age: 74 Year
  Sex: Female
  Weight: 86.17 kg

DRUGS (2)
  1. LIPITOR [Suspect]
     Indication: BLOOD CHOLESTEROL ABNORMAL
     Dosage: 20 mg, daily
     Route: 048
     Dates: end: 20121211
  2. ZETIA [Concomitant]
     Indication: TRIGLYCERIDES ABNORMAL
     Dosage: 10 mg, daily
     Route: 048

REACTIONS (2)
  - Hypertension [Unknown]
  - Blood cholesterol increased [Unknown]
